FAERS Safety Report 4388799-4 (Version None)
Quarter: 2004Q2

REPORT INFORMATION
  Report Type: 
  Country: None (occurrence: None)
  Receive Date: 20040624
  Receipt Date: 20040615
  Transmission Date: 20050107
  Serious: Yes (Death, Life-Threatening)
  Sender: FDA-Public Use
  Company Number: 04H-082-0263838-00

PATIENT
  Age: 19 Month
  Sex: Male
  Weight: 8 kg

DRUGS (5)
  1. HALOTHANE [Suspect]
     Indication: MAINTENANCE OF ANAESTHESIA
     Dosage: 2%, INHALATION
     Route: 055
  2. PROPOFOL [Concomitant]
  3. NITTROUS OXIDE [Concomitant]
  4. OXYGEN [Concomitant]
  5. DEXTROSE [Concomitant]

REACTIONS (4)
  - ANAESTHETIC COMPLICATION CARDIAC [None]
  - APALLIC SYNDROME [None]
  - CARDIAC ARREST [None]
  - CARDIAC OUTPUT DECREASED [None]
